FAERS Safety Report 4616985-4 (Version None)
Quarter: 2005Q1

REPORT INFORMATION
  Report Type: 
  Country: None (occurrence: None)
  Receive Date: 20050318
  Receipt Date: 20050304
  Transmission Date: 20050727
  Serious: Yes (Life-Threatening)
  Sender: FDA-Public Use
  Company Number: 10486

PATIENT
  Age: 44 Year
  Sex: Female

DRUGS (7)
  1. ATRACURIUM [Suspect]
     Indication: ANAESTHESIA
     Dosage: IV
     Route: 042
     Dates: start: 20040609, end: 20040609
  2. SUXAMETHONIUM [Suspect]
     Indication: ANAESTHESIA
     Dosage: 100 MG IV
     Route: 042
     Dates: start: 20040609, end: 20040609
  3. EVENING PRIMROSE OIL [Concomitant]
  4. COD LIVER OIL [Concomitant]
  5. PYRIDOXINE HCL [Concomitant]
  6. CALCIUM GLUCONATE [Concomitant]
  7. ZINC [Concomitant]

REACTIONS (4)
  - ANGIONEUROTIC OEDEMA [None]
  - HYPOTENSION [None]
  - SKIN TEST POSITIVE [None]
  - TACHYCARDIA [None]
